FAERS Safety Report 9546790 (Version 2)
Quarter: 2013Q4

REPORT INFORMATION
  Report Type: Spontaneous
  Country: US (occurrence: US)
  Receive Date: 20130924
  Receipt Date: 20131223
  Transmission Date: 20140711
  Serious: Yes (Hospitalization, Other)
  Sender: FDA-Public Use
  Company Number: US-JNJFOC-20130905888

PATIENT
  Age: 85 Year
  Sex: Female

DRUGS (6)
  1. TYLENOL ARTHRITIS [Suspect]
     Route: 048
  2. TYLENOL ARTHRITIS [Suspect]
     Indication: ARTHRITIS
     Route: 048
     Dates: end: 20111001
  3. TYLENOL EXTRA STRENGTH [Suspect]
  4. TYLENOL EXTRA STRENGTH [Suspect]
     Indication: PRODUCT USED FOR UNKNOWN INDICATION
  5. BLOOD PRESSURE MEDICATION NOS [Concomitant]
     Indication: PRODUCT USED FOR UNKNOWN INDICATION
  6. DIABETES MEDICATION [Concomitant]
     Indication: PRODUCT USED FOR UNKNOWN INDICATION

REACTIONS (5)
  - Sepsis [Recovering/Resolving]
  - Sepsis [Recovering/Resolving]
  - Liver abscess [Recovered/Resolved]
  - Leukocytosis [Recovering/Resolving]
  - Bronchitis [Recovering/Resolving]
